FAERS Safety Report 6978324-3 (Version None)
Quarter: 2010Q3

REPORT INFORMATION
  Report Type: 
  Country: None (occurrence: None)
  Receive Date: 20100913
  Receipt Date: 20100906
  Transmission Date: 20110219
  Serious: Yes (Other)
  Sender: FDA-Public Use
  Company Number: AU-SANOFI-AVENTIS-2010SA034154

PATIENT
  Age: 58 Year
  Sex: Female
  Weight: 65 kg

DRUGS (2)
  1. ARAVA [Suspect]
     Dates: start: 20091218
  2. METHOTREXATE [Concomitant]
     Dates: end: 20091201

REACTIONS (1)
  - BREAST CANCER [None]
